FAERS Safety Report 9919882 (Version 2)
Quarter: 2014Q1

REPORT INFORMATION
  Report Type: Report from Study
  Country: US (occurrence: US)
  Receive Date: 20140224
  Receipt Date: 20140224
  Transmission Date: 20141002
  Serious: Yes (Hospitalization)
  Sender: FDA-Public Use
  Company Number: US-DENDREON CORPORATION-2014PROUSA03521

PATIENT
  Age: 85 Year
  Sex: Male
  Weight: 63.49 kg

DRUGS (29)
  1. SIPULEUCEL-T [Suspect]
     Indication: PROSTATE CANCER METASTATIC
     Dosage: 250 ML, SINGLE
     Route: 042
     Dates: start: 20120706, end: 20120706
  2. SIPULEUCEL-T [Suspect]
     Dosage: 250 ML, SINGLE
     Route: 042
     Dates: start: 20120720, end: 20120720
  3. SIPULEUCEL-T [Suspect]
     Dosage: 250 ML, SINGLE
     Route: 042
     Dates: start: 20120803, end: 20120803
  4. ZOLADEX [Concomitant]
     Indication: PROSTATE CANCER
     Dosage: UNK
     Dates: start: 19971126
  5. ELIGARD [Concomitant]
     Indication: PROSTATE CANCER
     Dosage: UNK
     Dates: start: 20110526
  6. ALFUZOSIN [Concomitant]
     Indication: POLLAKIURIA
     Dosage: 10 MG, UNK
  7. DOXAZOSIN MESYLATE [Concomitant]
     Indication: POLLAKIURIA
     Dosage: 2 MG, UNK
  8. FENOFIBRATE [Concomitant]
     Indication: HYPERLIPIDAEMIA
     Dosage: 160 MG, UNK
  9. SITAGLIPTIN [Concomitant]
     Indication: DIABETES MELLITUS
     Dosage: 50 MG, UNK
     Route: 048
  10. LEVOTHYROXINE SODIUM [Concomitant]
     Indication: HYPOTHYROIDISM
     Dosage: 88 MCG, QD
     Route: 048
  11. NITROGLYCERIN [Concomitant]
     Indication: CHEST PAIN
     Dosage: 0.4 MG, UNK
     Route: 060
  12. CALCIUM CITRATE [Concomitant]
     Indication: ROUTINE HEALTH MAINTENANCE
     Dosage: 1 DF, UNK
  13. MAGNESIUM [Concomitant]
     Indication: ROUTINE HEALTH MAINTENANCE
     Dosage: 250 MG, UNK
     Route: 048
  14. CYANOCOBALAMIN [Concomitant]
     Indication: ROUTINE HEALTH MAINTENANCE
     Dosage: 500 UNK, UNK
     Route: 048
  15. FOLIC ACID [Concomitant]
     Indication: ROUTINE HEALTH MAINTENANCE
     Dosage: 400 MCG, QD
     Route: 048
  16. OMEGA-3 FATTY ACIDS [Concomitant]
     Indication: ROUTINE HEALTH MAINTENANCE
     Dosage: 1 DF, UNK
  17. COLECALCIFEROL [Concomitant]
     Indication: ROUTINE HEALTH MAINTENANCE
     Dosage: 1000 MG, QD
     Route: 048
  18. ASPIRIN [Concomitant]
     Indication: CARDIOVASCULAR EVENT PROPHYLAXIS
     Dosage: 81 MG, UNK
  19. ABIRATERONE [Concomitant]
     Indication: PROSTATE CANCER
     Dosage: 250 MG, QD
     Route: 048
     Dates: start: 20130603
  20. TOPROL [Concomitant]
     Indication: PRODUCT USED FOR UNKNOWN INDICATION
     Dosage: 50 MG, QD
     Route: 048
  21. PRECOSE [Concomitant]
     Indication: PRODUCT USED FOR UNKNOWN INDICATION
     Dosage: 25 MG, TID
     Route: 048
  22. PRILOSEC [Concomitant]
     Indication: PRODUCT USED FOR UNKNOWN INDICATION
     Dosage: 20 MG, PRN
  23. CO ENZYME Q10 [Concomitant]
     Indication: PRODUCT USED FOR UNKNOWN INDICATION
     Dosage: 30 MG, UNK
     Route: 048
  24. GLIPIZIDE [Concomitant]
     Indication: PRODUCT USED FOR UNKNOWN INDICATION
     Dosage: 10 MG, UNK
     Route: 048
  25. LANTUS [Concomitant]
     Indication: PRODUCT USED FOR UNKNOWN INDICATION
     Dosage: 100 U/L, UNK
     Route: 058
  26. METFORMIN HCL [Concomitant]
     Indication: PRODUCT USED FOR UNKNOWN INDICATION
     Dosage: 500 MG, UNK
     Route: 048
  27. MULTIVITAMIN [Concomitant]
     Indication: PRODUCT USED FOR UNKNOWN INDICATION
     Route: 048
  28. CITRACAL + D [Concomitant]
     Indication: PRODUCT USED FOR UNKNOWN INDICATION
     Dosage: 315/200
     Route: 048
  29. BIOTIN [Concomitant]
     Indication: PRODUCT USED FOR UNKNOWN INDICATION
     Dosage: 500 MG, UNK
     Route: 048

REACTIONS (1)
  - Cerebrovascular accident [Not Recovered/Not Resolved]
